FAERS Safety Report 16084977 (Version 1)
Quarter: 2019Q1

REPORT INFORMATION
  Report Type: Spontaneous
  Country: US (occurrence: US)
  Receive Date: 20190318
  Receipt Date: 20190318
  Transmission Date: 20190418
  Serious: No
  Sender: FDA-Public Use
  Company Number: US-AMGEN-USASP2019041337

PATIENT
  Age: 38 Year
  Sex: Female

DRUGS (1)
  1. NEUPOGEN [Suspect]
     Active Substance: FILGRASTIM
     Indication: INFERTILITY
     Dosage: 10 UNIT, QD (10 UNITS PER DAY WITH AN INSULIN SYRINGE FROM A 300 MCG NEUPOGEN VIAL)
     Route: 065

REACTIONS (2)
  - Expired product administered [Unknown]
  - Off label use [Unknown]
